FAERS Safety Report 9852452 (Version 2)
Quarter: 2014Q1

REPORT INFORMATION
  Report Type: Spontaneous
  Country: US (occurrence: None)
  Receive Date: 20140127
  Receipt Date: 20140205
  Transmission Date: 20141002
  Serious: Yes (Other)
  Sender: FDA-Public Use
  Company Number: AUR-APL-2014-00463

PATIENT
  Age: 50 Year
  Sex: Male

DRUGS (3)
  1. FLUOXETINE (FLUOXETINE) [Suspect]
     Indication: DEPRESSION
  2. HYDROCHLOROTHIAZIDE (HYDROCHLOROTHIAZIDE) [Concomitant]
  3. PROPRANOLOL (PROPRANOLOL) [Concomitant]

REACTIONS (4)
  - Pain in jaw [None]
  - Bruxism [None]
  - Bruxism [None]
  - Myalgia [None]
